FAERS Safety Report 23480873 (Version 1)
Quarter: 2024Q1

REPORT INFORMATION
  Report Type: Spontaneous
  Country: DE (occurrence: DE)
  Receive Date: 20240205
  Receipt Date: 20240205
  Transmission Date: 20240410
  Serious: Yes (Hospitalization, Other)
  Sender: FDA-Public Use
  Company Number: DE-EMBRYOTOX-202207204

PATIENT
  Sex: Female
  Weight: 62 kg

DRUGS (5)
  1. CARBAMAZEPINE [Suspect]
     Active Substance: CARBAMAZEPINE
     Indication: Partial seizures
     Dosage: 600 [MG/D ] 3 SEPARATED DOSES; 200-200-200, ADDITIONAL INFO :0. - 26.3. GESTATIONAL WEEK
     Route: 048
     Dates: start: 20220424, end: 20221026
  2. LEVOTHYROXINE SODIUM [Concomitant]
     Active Substance: LEVOTHYROXINE SODIUM
     Indication: Autoimmune thyroiditis
     Dosage: 150 [?G/D ]/ 125 ?G/D AT THE BEGINNING OF PREGNANCY, INCREASED AT GW19, ADDITIONAL INFO:0. - 26.3...
     Route: 048
     Dates: start: 20220424, end: 20221026
  3. PROGESTERONE [Concomitant]
     Active Substance: PROGESTERONE
     Indication: Prophylaxis of abortion
     Dosage: UNKNOWN WHEN STARTED, DOSAGE UNKNOWN, ADDITIONAL INFO: TRIMESTER: UNKNOWN TRIMESTER
     Route: 048
  4. ASPIRIN [Concomitant]
     Active Substance: ASPIRIN
     Indication: Prophylaxis of abortion
     Dosage: 100 [MG/D ], ADDITIONAL INFO:5. - 26.3. GESTATIONAL WEEK
     Route: 048
  5. ENOXAPARIN SODIUM [Concomitant]
     Active Substance: ENOXAPARIN SODIUM
     Indication: Prophylaxis of abortion
     Dosage: UNKNOWN WHEN STARTED, DOSAGE UNKNOWN,OTHER INFO: ?26.3. - 26.3. GESTATIONAL WEEK.
     Route: 058

REACTIONS (1)
  - Foetal death [Unknown]
